FAERS Safety Report 13601631 (Version 5)
Quarter: 2024Q3

REPORT INFORMATION
  Report Type: Spontaneous
  Country: JP (occurrence: JP)
  Receive Date: 20170601
  Receipt Date: 20240925
  Transmission Date: 20241017
  Serious: Yes (Other)
  Sender: PFIZER
  Company Number: JP-MLMSERVICE-20170424-0563725-1

PATIENT
  Age: 16 Year
  Sex: Female
  Weight: 42.4 kg

DRUGS (5)
  1. METHOTREXATE SODIUM [Suspect]
     Active Substance: METHOTREXATE SODIUM
     Indication: Dermatomyositis
     Dosage: 10 MG/M2, WEEKLY
  2. METHYLPREDNISOLONE [Suspect]
     Active Substance: METHYLPREDNISOLONE
     Indication: Dermatomyositis
     Dosage: THREE COURSES OF METHYLPREDNISOLONE PULSE THERAPY (ONE COURSE = 30 MG/KG/DAY X 3 DAYS/WEEK)
  3. PREDNISOLONE [Suspect]
     Active Substance: PREDNISOLONE
     Dosage: 2 MG/KG/DAY
     Route: 048
  4. PREDNISOLONE [Suspect]
     Active Substance: PREDNISOLONE
     Dosage: 0.2 MG/KG/DAY (LOW DOSE)
     Route: 048
  5. CYCLOPHOSPHAMIDE [Suspect]
     Active Substance: CYCLOPHOSPHAMIDE
     Dosage: 500 MG/M2/DAY X 1 DAY/MONTH
     Route: 042

REACTIONS (2)
  - Short stature [Unknown]
  - Off label use [Unknown]
